FAERS Safety Report 13587950 (Version 4)
Quarter: 2017Q3

REPORT INFORMATION
  Report Type: Spontaneous
  Country: JP (occurrence: JP)
  Receive Date: 20170527
  Receipt Date: 20170824
  Transmission Date: 20171127
  Serious: Yes (Death, Other)
  Sender: FDA-Public Use
  Company Number: JP-CONCORDIA PHARMACEUTICALS INC.-GSH201705-003202

PATIENT
  Sex: Male
  Weight: 70.6 kg

DRUGS (11)
  1. BISOPROLOL [Concomitant]
     Active Substance: BISOPROLOL
  2. PREDNISOLONE. [Suspect]
     Active Substance: PREDNISOLONE
     Indication: HYPERSENSITIVITY VASCULITIS
     Route: 048
  3. AMIODARONE [Concomitant]
     Active Substance: AMIODARONE
  4. ASPIRIN. [Concomitant]
     Active Substance: ASPIRIN
  5. LANSOPRAZOLE. [Concomitant]
     Active Substance: LANSOPRAZOLE
  6. PIPERACILLIN [Concomitant]
     Active Substance: PIPERACILLIN
     Indication: INFECTION
  7. BROTIZOLAM [Concomitant]
     Active Substance: BROTIZOLAM
  8. PREDNISOLONE. [Suspect]
     Active Substance: PREDNISOLONE
  9. NICORANDIL [Concomitant]
     Active Substance: NICORANDIL
  10. LANSOPRAZOLE. [Concomitant]
     Active Substance: LANSOPRAZOLE
  11. HUMALOG MIX50/50 [Concomitant]
     Active Substance: INSULIN LISPRO
     Dosage: NOON 3 UNITS AND EVENING 3 UNITS

REACTIONS (3)
  - Disseminated intravascular coagulation [Fatal]
  - Drug ineffective [Unknown]
  - Condition aggravated [Unknown]
